FAERS Safety Report 18905170 (Version 2)
Quarter: 2021Q1

REPORT INFORMATION
  Report Type: Spontaneous
  Country: US (occurrence: US)
  Receive Date: 20210217
  Receipt Date: 20210303
  Transmission Date: 20210420
  Serious: No
  Sender: FDA-Public Use
  Company Number: US-BELCHER PHARMACEUTICALS, LLC-2021US001211

PATIENT

DRUGS (1)
  1. EPINEPHRINE INJECTION USP [Suspect]
     Active Substance: EPINEPHRINE
     Indication: LIPOSUCTION
     Dosage: 1 MG/ML

REACTIONS (4)
  - Contusion [Recovering/Resolving]
  - Drug ineffective for unapproved indication [Unknown]
  - Product complaint [Unknown]
  - Off label use [Unknown]

NARRATIVE: CASE EVENT DATE: 20210209
